FAERS Safety Report 9461581 (Version 2)
Quarter: 2013Q4

REPORT INFORMATION
  Report Type: Spontaneous
  Country: GB (occurrence: GB)
  Receive Date: 20130816
  Receipt Date: 20131018
  Transmission Date: 20140711
  Serious: Yes (Hospitalization)
  Sender: FDA-Public Use
  Company Number: GB-SHIRE-ALL1-2013-05426

PATIENT
  Age: 29 Year
  Sex: Male

DRUGS (2)
  1. MEZAVANT XL [Suspect]
     Indication: COLITIS
     Dosage: 1200 MG (4-1200MG TABLETS DAILY)
     Route: 048
  2. MEZAVANT XL [Suspect]
     Indication: CROHN^S DISEASE

REACTIONS (4)
  - Crohn^s disease [Recovered/Resolved]
  - Colitis [Recovered/Resolved]
  - Medication residue present [Recovered/Resolved with Sequelae]
  - Off label use [Not Recovered/Not Resolved]
